FAERS Safety Report 25059074 (Version 3)
Quarter: 2025Q1

REPORT INFORMATION
  Report Type: Spontaneous
  Country: PT (occurrence: PT)
  Receive Date: 20250310
  Receipt Date: 20250314
  Transmission Date: 20250409
  Serious: Yes (Hospitalization, Other)
  Sender: ASTELLAS
  Company Number: PT-ASTELLAS-2025-AER-013372

PATIENT
  Age: 76 Year
  Sex: Male

DRUGS (14)
  1. ENFORTUMAB VEDOTIN [Suspect]
     Active Substance: ENFORTUMAB VEDOTIN
     Indication: Transitional cell carcinoma metastatic
     Route: 042
     Dates: start: 202404
  2. ENFORTUMAB VEDOTIN [Suspect]
     Active Substance: ENFORTUMAB VEDOTIN
     Route: 042
     Dates: start: 202405
  3. ENFORTUMAB VEDOTIN [Suspect]
     Active Substance: ENFORTUMAB VEDOTIN
     Route: 042
     Dates: start: 202411
  4. ENFORTUMAB VEDOTIN [Suspect]
     Active Substance: ENFORTUMAB VEDOTIN
     Route: 042
     Dates: start: 202412
  5. DULOXETINE [Suspect]
     Active Substance: DULOXETINE
     Indication: Neuropathy peripheral
     Route: 065
     Dates: start: 202411
  6. DULOXETINE [Suspect]
     Active Substance: DULOXETINE
     Route: 065
     Dates: start: 202411
  7. APIXABAN [Concomitant]
     Active Substance: APIXABAN
     Indication: Product used for unknown indication
     Route: 065
  8. APIXABAN [Concomitant]
     Active Substance: APIXABAN
     Route: 065
  9. SACUBITRIL\VALSARTAN [Concomitant]
     Active Substance: SACUBITRIL\VALSARTAN
     Indication: Product used for unknown indication
     Dosage: 49 + 51 MG
     Route: 065
  10. SACUBITRIL\VALSARTAN [Concomitant]
     Active Substance: SACUBITRIL\VALSARTAN
     Dosage: 49 + 51 MG
     Route: 065
  11. BISOPROLOL FUMARATE [Concomitant]
     Active Substance: BISOPROLOL FUMARATE
     Indication: Product used for unknown indication
     Route: 065
  12. BISOPROLOL FUMARATE [Concomitant]
     Active Substance: BISOPROLOL FUMARATE
     Route: 065
  13. ROSUVASTATIN [Concomitant]
     Active Substance: ROSUVASTATIN
     Indication: Product used for unknown indication
     Route: 065
  14. ROSUVASTATIN [Concomitant]
     Active Substance: ROSUVASTATIN
     Route: 065

REACTIONS (14)
  - Neutropenia [Unknown]
  - Rectal haemorrhage [Unknown]
  - Haemorrhoidal haemorrhage [Unknown]
  - Acute kidney injury [Unknown]
  - Atrial fibrillation [Unknown]
  - Respiratory failure [Unknown]
  - Hyperglycaemia [Unknown]
  - Cardiac failure [Unknown]
  - Neuropathy peripheral [Unknown]
  - Decreased appetite [Unknown]
  - Weight decreased [Unknown]
  - Dry skin [Unknown]
  - Erythema [Unknown]
  - Skin exfoliation [Unknown]

NARRATIVE: CASE EVENT DATE: 20240101
